FAERS Safety Report 8792019 (Version 1)
Quarter: 2012Q4

REPORT INFORMATION
  Report Type: 
  Country: US (occurrence: US)
  Receive Date: 20120918
  Receipt Date: 20120918
  Transmission Date: 20130627
  Serious: No
  Sender: FDA-Public Use
  Company Number: US-VERTEX PHARMACEUTICAL INC.-AE-2012-011800

PATIENT
  Sex: Female

DRUGS (7)
  1. VX-950 [Suspect]
     Indication: HEPATITIS C
     Dosage: 750 mg, tid
     Route: 048
  2. VX-950 [Suspect]
     Dosage: UNK
  3. PEGASYS [Suspect]
     Indication: HEPATITIS C
     Dosage: 180 ?g, UNK
  4. RIBAPAK PAK [Concomitant]
     Indication: HEPATITIS C
     Dosage: 800/day
  5. LABETATOL [Concomitant]
  6. ARMOUR THYRO [Concomitant]
  7. AMBIEN [Concomitant]

REACTIONS (7)
  - Headache [Unknown]
  - Injection site bruising [Unknown]
  - Rash [Not Recovered/Not Resolved]
  - Pruritus [Not Recovered/Not Resolved]
  - Anorectal discomfort [Not Recovered/Not Resolved]
  - Nausea [Unknown]
  - Dysgeusia [Unknown]
